FAERS Safety Report 8376130-9 (Version None)
Quarter: 2012Q2

REPORT INFORMATION
  Report Type: 
  Country: None (occurrence: None)
  Receive Date: 20120522
  Receipt Date: 20120518
  Transmission Date: 20120825
  Serious: Yes (Other)
  Sender: FDA-Public Use
  Company Number: PHEH2012US008160

PATIENT
  Sex: Female

DRUGS (2)
  1. FEMARA [Suspect]
     Indication: BREAST CANCER
  2. LETROZOLE [Suspect]
     Indication: BREAST CANCER
     Dosage: 01 MG, QD
     Route: 048
     Dates: start: 20120201, end: 20120401

REACTIONS (2)
  - BLOOD OESTROGEN INCREASED [None]
  - DRUG INEFFECTIVE [None]
